FAERS Safety Report 5191184-9 (Version None)
Quarter: 2006Q4

REPORT INFORMATION
  Report Type: 
  Country: None (occurrence: None)
  Receive Date: 20061218
  Receipt Date: 20061207
  Transmission Date: 20070319
  Serious: Yes (Other)
  Sender: FDA-Public Use
  Company Number: 2006145142

PATIENT
  Sex: Male

DRUGS (11)
  1. GABAPENTIN [Suspect]
     Indication: NEURALGIA
     Dosage: 3600 MG (1200 MG, 3 IN 1 D), ORAL
     Route: 048
  2. GABAPENTIN [Suspect]
     Indication: PAIN
     Dosage: 3600 MG (1200 MG, 3 IN 1 D), ORAL
     Route: 048
  3. METHADONE HCL [Suspect]
  4. BENDROFLUAZIDE (BENDROFLUMETHIAZIDE) [Concomitant]
  5. DIAZEPAM [Concomitant]
  6. LANSOPRAZOLE [Concomitant]
  7. ATENOLOL [Concomitant]
  8. QUININE SULFATE [Concomitant]
  9. TESTOSTERONE (TESTOSRERONE) [Concomitant]
  10. ACETAMINOPHEN [Concomitant]
  11. MAGNESIUM SULFATE [Concomitant]

REACTIONS (2)
  - DRUG EFFECT DECREASED [None]
  - SEDATION [None]
